FAERS Safety Report 13365636 (Version 1)
Quarter: 2017Q1

REPORT INFORMATION
  Report Type: Spontaneous
  Country: US (occurrence: US)
  Receive Date: 20170323
  Receipt Date: 20170323
  Transmission Date: 20170429
  Serious: No
  Sender: FDA-Public Use
  Company Number: US-WARNER CHILCOTT-2016-001496

PATIENT
  Sex: Female
  Weight: 54 kg

DRUGS (4)
  1. COPAXONE [Concomitant]
     Active Substance: GLATIRAMER ACETATE
     Indication: MULTIPLE SCLEROSIS
     Dosage: 20 MG, QD
     Route: 051
     Dates: start: 2001
  2. ESTRACE [Suspect]
     Active Substance: ESTRADIOL
     Indication: VULVOVAGINAL DRYNESS
     Dosage: A TINY BIT EACH DAY
     Route: 067
     Dates: start: 2016, end: 20160704
  3. KY WARMING [Concomitant]
     Active Substance: HYDROXYPROPYL CELLULOSE\NIACIN\PEG-8 CAPRYLIC/CAPRIC GLYCERIDES\PROPYLENE GLYCOL\TOCOPHEROL
     Indication: VULVOVAGINAL DRYNESS
     Dosage: UNKNOWN
     Route: 067
     Dates: start: 2016
  4. ESTRACE [Suspect]
     Active Substance: ESTRADIOL
     Indication: URINARY TRACT INFECTION

REACTIONS (3)
  - Micturition disorder [Recovered/Resolved]
  - Vulvovaginal discomfort [Recovered/Resolved]
  - Product use issue [Unknown]

NARRATIVE: CASE EVENT DATE: 2016
